FAERS Safety Report 8761849 (Version 2)
Quarter: 2013Q1

REPORT INFORMATION
  Report Type: Spontaneous
  Country: JP (occurrence: None)
  Receive Date: 20120822
  Receipt Date: 20121213
  Transmission Date: 20140127
  Serious: Yes (Other)
  Sender: FDA-Public Use
  Company Number: 2009JP005835

PATIENT
  Age: 33 Year
  Sex: Female

DRUGS (17)
  1. TACROLIMUS CAPSULES [Suspect]
     Indication: LUPUS NEPHRITIS
     Dosage: UNKNOWN/D
     Route: 048
     Dates: start: 20080620
  2. PREDNISOLONE [Suspect]
     Indication: LUPUS NEPHRITIS
     Dosage: UNKNOWN/D
     Route: 048
     Dates: end: 20080717
  3. TOYOFAROL (ALFACALCIDOL) [Concomitant]
  4. BLOSTAR M (FAMOTIDINE) TABLET [Concomitant]
  5. CALCIUM LACTATE (CALCIUM LACTATE) [Concomitant]
  6. YAKUBAN (FLURBIPROFEN) [Concomitant]
  7. MOHRUS (KETOPROFEN) [Concomitant]
  8. PL GRAN. (CAFFEINE, PARACETAMOL, PROMETHAZINE METHYLENE DISALICYLATE, SALICYLAMIDE) GRANULE [Concomitant]
  9. SOLANTAL (TIARAMIDE HYDROCHLORIDE) [Concomitant]
  10. LACTION (INDOMETACIN) TAPE [Concomitant]
  11. FERROMIA (FERROUS SODIUM CITRATE) TABLET [Concomitant]
  12. SAWATENE (CARBOCISTEINE) TABLET [Concomitant]
  13. ASTHPHYLLIN (NOSCAPINE, PAPAVERINE HYDROCHLORIDE) TABLET [Concomitant]
  14. CLARITH (CLARITHROMYCIN) TABLET [Concomitant]
  15. NEGMIN (POVIDONE0IODINE) MOUTH WASH [Concomitant]
  16. LOXONIN (LOXOPROFEN SODIUM) TAPE [Concomitant]
  17. LOCOID (HYDROCORTISONE BUTYRATE) OINTMENT [Concomitant]

REACTIONS (5)
  - Nasopharyngitis [None]
  - Iron deficiency anaemia [None]
  - Bronchitis [None]
  - Dermatitis contact [None]
  - Infection [None]
